FAERS Safety Report 13378427 (Version 1)
Quarter: 2017Q1

REPORT INFORMATION
  Report Type: Report from Study
  Country: US (occurrence: US)
  Receive Date: 20170328
  Receipt Date: 20170328
  Transmission Date: 20170429
  Serious: Yes (Death)
  Sender: FDA-Public Use
  Company Number: US-PFIZER INC-2016573636

PATIENT
  Age: 68 Year
  Sex: Male

DRUGS (2)
  1. DAPTOMYCIN. [Suspect]
     Active Substance: DAPTOMYCIN
     Indication: DIABETIC FOOT INFECTION
     Dosage: 6.4 MG/KG, ALTERNATE DAY (EVERY 48 HOURS )
  2. DAPTOMYCIN. [Suspect]
     Active Substance: DAPTOMYCIN
     Indication: STAPHYLOCOCCAL INFECTION
     Dosage: 12.8 MG/KG, 2X/DAY (EVERY 12 HOURS )

REACTIONS (1)
  - Cardiac death [Fatal]
